FAERS Safety Report 8037343-9 (Version None)
Quarter: 2012Q1

REPORT INFORMATION
  Report Type: 
  Country: None (occurrence: None)
  Receive Date: 20120109
  Receipt Date: 20111229
  Transmission Date: 20120608
  Serious: Yes (Hospitalization)
  Sender: FDA-Public Use
  Company Number: 1000026618

PATIENT
  Age: 84 Year
  Sex: Male

DRUGS (1)
  1. PROPRANOLOL HYDROCHLORIDE [Suspect]

REACTIONS (3)
  - DRUG INTERACTION [None]
  - DYSPNOEA [None]
  - DIZZINESS [None]
